FAERS Safety Report 13213025 (Version 1)
Quarter: 2017Q1

REPORT INFORMATION
  Report Type: Report from Study
  Country: AU (occurrence: AU)
  Receive Date: 20170210
  Receipt Date: 20170210
  Transmission Date: 20170428
  Serious: Yes (Hospitalization, Other)
  Sender: FDA-Public Use
  Company Number: AU-UCBSA-2017001867

PATIENT
  Age: 58 Year
  Sex: Male
  Weight: 81 kg

DRUGS (14)
  1. ADRENALINE [Concomitant]
     Active Substance: EPINEPHRINE
  2. OCTREOTIDE. [Concomitant]
     Active Substance: OCTREOTIDE
     Indication: PRODUCT USED FOR UNKNOWN INDICATION
     Route: 058
  3. HYDRALYTE [Concomitant]
     Indication: PRODUCT USED FOR UNKNOWN INDICATION
  4. BUSCOPAN [Concomitant]
     Active Substance: BUTYLSCOPOLAMINE BROMIDE
  5. OCTREOTIDE. [Concomitant]
     Active Substance: OCTREOTIDE
     Indication: PRODUCT USED FOR UNKNOWN INDICATION
     Route: 042
  6. BRIVARACETAM [Suspect]
     Active Substance: BRIVARACETAM
     Indication: EPILEPSY
     Dosage: UNK
     Route: 048
     Dates: end: 20160721
  7. KEPPRA [Suspect]
     Active Substance: LEVETIRACETAM
     Indication: PRODUCT USED FOR UNKNOWN INDICATION
     Dosage: HIGHER DOSE
  8. PROPRANOLOL [Suspect]
     Active Substance: PROPRANOLOL HYDROCHLORIDE
     Indication: PRODUCT USED FOR UNKNOWN INDICATION
     Dosage: UNK
  9. MIDAZOLAM [Suspect]
     Active Substance: MIDAZOLAM HYDROCHLORIDE
     Indication: AGITATION
     Dosage: 1MG
     Route: 042
     Dates: start: 201701
  10. CALCIUM [Concomitant]
     Active Substance: CALCIUM
  11. LAMOTRIGINE. [Suspect]
     Active Substance: LAMOTRIGINE
     Indication: PRODUCT USED FOR UNKNOWN INDICATION
     Dosage: UNK
  12. INDERAL [Concomitant]
     Active Substance: PROPRANOLOL HYDROCHLORIDE
     Indication: PRODUCT USED FOR UNKNOWN INDICATION
     Dosage: 20 MG, 2X/DAY (BID)
  13. LAMOTRIGINE. [Suspect]
     Active Substance: LAMOTRIGINE
     Dosage: 100 MG DAILY
     Dates: start: 20170113
  14. KEPPRA [Suspect]
     Active Substance: LEVETIRACETAM
     Dosage: 500 MG, 2X/DAY (BID)
     Dates: start: 20170113

REACTIONS (18)
  - Hypovolaemic shock [Unknown]
  - Cholestasis [Not Recovered/Not Resolved]
  - Flushing [Unknown]
  - Defect conduction intraventricular [Unknown]
  - Renal failure [Not Recovered/Not Resolved]
  - Metastases to liver [Unknown]
  - Metabolic acidosis [Unknown]
  - Pyrexia [Unknown]
  - Somnolence [Unknown]
  - Cardiac arrest [Unknown]
  - Agitation [Unknown]
  - Neuroendocrine tumour [Not Recovered/Not Resolved]
  - Pneumonia [Unknown]
  - Adverse event [Not Recovered/Not Resolved]
  - Carcinoid crisis [Unknown]
  - Bradycardia [Unknown]
  - Respiratory depression [Unknown]
  - Cough [Unknown]

NARRATIVE: CASE EVENT DATE: 201701
